FAERS Safety Report 15372894 (Version 1)
Quarter: 2018Q3

REPORT INFORMATION
  Report Type: Spontaneous
  Country: FR (occurrence: FR)
  Receive Date: 20180912
  Receipt Date: 20180912
  Transmission Date: 20181010
  Serious: Yes (Hospitalization)
  Sender: FDA-Public Use
  Company Number: FR-TEVA-2018-FR-953771

PATIENT
  Sex: Male

DRUGS (4)
  1. FUROSEMIDE. [Suspect]
     Active Substance: FUROSEMIDE
     Indication: MEDICATION ERROR
     Route: 048
     Dates: start: 20180731, end: 20180731
  2. BISOPROLOL (FUMARATE ACIDE DE) [Suspect]
     Active Substance: BISOPROLOL FUMARATE
     Indication: MEDICATION ERROR
     Route: 048
     Dates: start: 20180731, end: 20180731
  3. CANDESARTAN CILEXETIL. [Suspect]
     Active Substance: CANDESARTAN CILEXETIL
     Indication: MEDICATION ERROR
     Route: 048
     Dates: start: 20180731, end: 20180731
  4. FLECAINIDE (ACETATE DE) [Suspect]
     Active Substance: FLECAINIDE
     Indication: MEDICATION ERROR
     Route: 048
     Dates: start: 20180731, end: 20180731

REACTIONS (2)
  - Bradycardia [Recovered/Resolved]
  - Hypotension [Recovered/Resolved]

NARRATIVE: CASE EVENT DATE: 20180731
